FAERS Safety Report 13163216 (Version 1)
Quarter: 2017Q1

REPORT INFORMATION
  Report Type: Spontaneous
  Country: US (occurrence: US)
  Receive Date: 20170129
  Receipt Date: 20170129
  Transmission Date: 20170428
  Serious: Yes (Death)
  Sender: FDA-Public Use
  Company Number: None

PATIENT
  Age: 10 Month
  Sex: Female
  Weight: 63 kg

DRUGS (7)
  1. COUGH SUPPRESSANT [Concomitant]
     Active Substance: UNSPECIFIED INGREDIENT
  2. ADVIL [Concomitant]
     Active Substance: IBUPROFEN
  3. ROBITUSSIN (GUAIFENESIN) [Concomitant]
     Active Substance: GUAIFENESIN
  4. PORT [Concomitant]
  5. PREDNINSONE [Concomitant]
  6. ANTIBIOTICS [Concomitant]
     Active Substance: UNSPECIFIED INGREDIENT
  7. KEYTRUDA [Suspect]
     Active Substance: PEMBROLIZUMAB
     Indication: SQUAMOUS CELL CARCINOMA OF LUNG
     Dosage: ?          OTHER FREQUENCY:GOT IT ONE TIME;OTHER ROUTE:PORT FOR CHEMO, BLOOD WORK, ETC?
     Dates: start: 20170111, end: 20170128

REACTIONS (14)
  - Myasthenia gravis [None]
  - Vision blurred [None]
  - Drug ineffective [None]
  - Renal failure [None]
  - Myalgia [None]
  - Infection [None]
  - Dizziness [None]
  - Heart rate increased [None]
  - Pain [None]
  - Hypotension [None]
  - Hypophagia [None]
  - Dyspnoea [None]
  - Myocardial infarction [None]
  - Stress cardiomyopathy [None]

NARRATIVE: CASE EVENT DATE: 20170123
